FAERS Safety Report 15672954 (Version 1)
Quarter: 2018Q4

REPORT INFORMATION
  Report Type: Report from Study
  Country: US (occurrence: US)
  Receive Date: 20181129
  Receipt Date: 20181129
  Transmission Date: 20190205
  Serious: Yes (Hospitalization)
  Sender: FDA-Public Use
  Company Number: US-GILEAD-2018-0377026

PATIENT
  Age: 49 Year
  Sex: Female

DRUGS (7)
  1. LIPITOR [Concomitant]
     Active Substance: ATORVASTATIN CALCIUM
  2. AMBRISENTAN [Suspect]
     Active Substance: AMBRISENTAN
     Indication: PULMONARY ARTERIAL HYPERTENSION
     Dosage: 10 MG, QD
     Route: 065
     Dates: start: 20170508
  3. MICROLET [ETHINYLESTRADIOL;GESTODENE] [Concomitant]
  4. DHA [Concomitant]
     Active Substance: DIETARY SUPPLEMENT
  5. LEVAQUIN [Concomitant]
     Active Substance: LEVOFLOXACIN
  6. ADCIRCA [Concomitant]
     Active Substance: TADALAFIL
  7. ASPIRIN [ACETYLSALICYLIC ACID] [Concomitant]
     Active Substance: ASPIRIN

REACTIONS (2)
  - Influenza [Unknown]
  - Bronchitis [Unknown]
